FAERS Safety Report 8281613-6 (Version None)
Quarter: 2012Q2

REPORT INFORMATION
  Report Type: 
  Country: None (occurrence: None)
  Receive Date: 20120413
  Receipt Date: 20120402
  Transmission Date: 20120825
  Serious: Yes (Other)
  Sender: FDA-Public Use
  Company Number: CA-JNJFOC-20120402381

PATIENT
  Sex: Male

DRUGS (5)
  1. CRESTOR [Concomitant]
     Indication: BLOOD CHOLESTEROL
     Route: 065
  2. CRESTOR [Concomitant]
     Route: 065
  3. METHOTREXATE [Concomitant]
     Route: 065
  4. EURO FOLIC [Concomitant]
     Route: 065
  5. REMICADE [Suspect]
     Indication: ANKYLOSING SPONDYLITIS
     Route: 042
     Dates: start: 20111223

REACTIONS (2)
  - DIABETES MELLITUS [None]
  - HYPERTENSION [None]
